FAERS Safety Report 5563642-6 (Version None)
Quarter: 2007Q4

REPORT INFORMATION
  Report Type: 
  Country: None (occurrence: None)
  Receive Date: 20071217
  Receipt Date: 20071207
  Transmission Date: 20080405
  Serious: Yes (Hospitalization, Other)
  Sender: FDA-Public Use
  Company Number: JP-JNJFOC-20071102793

PATIENT
  Sex: Female
  Weight: 67 kg

DRUGS (10)
  1. REMICADE [Suspect]
     Dosage: 15TH DOSE
     Route: 042
  2. REMICADE [Suspect]
     Dosage: 14TH DOSE
     Route: 042
  3. REMICADE [Suspect]
     Dosage: ADDITIONAL 12 INFUSIONS ON UNSPECIFIED DATES (DOSES 2-13)
     Route: 042
  4. REMICADE [Suspect]
     Indication: RHEUMATOID ARTHRITIS
     Route: 042
  5. RHEUMATREX [Concomitant]
     Indication: RHEUMATOID ARTHRITIS
     Route: 048
  6. FOLIAMIN [Concomitant]
     Indication: RHEUMATOID ARTHRITIS
     Route: 048
  7. LIPITOR [Concomitant]
     Indication: HYPERLIPIDAEMIA
     Route: 048
  8. MAGLAX [Concomitant]
     Indication: CONSTIPATION
     Route: 048
  9. GLYSENNID [Concomitant]
     Indication: CONSTIPATION
     Route: 048
  10. MIYA BM [Concomitant]
     Indication: IRRITABLE BOWEL SYNDROME
     Route: 048

REACTIONS (2)
  - ALOPECIA [None]
  - PUSTULAR PSORIASIS [None]
